FAERS Safety Report 8662156 (Version 7)
Quarter: 2014Q1

REPORT INFORMATION
  Report Type: Report from Study
  Country: US (occurrence: US)
  Receive Date: 20120712
  Receipt Date: 20140218
  Transmission Date: 20141002
  Serious: Yes (Hospitalization, Other)
  Sender: FDA-Public Use
  Company Number: US-ELI_LILLY_AND_COMPANY-US201207001568

PATIENT
  Age: 70 Year
  Sex: Female

DRUGS (27)
  1. TERIPARATIDE [Suspect]
     Indication: OSTEOPOROSIS
     Dosage: 20 UG, QD
     Route: 058
     Dates: start: 201205
  2. TERIPARATIDE [Suspect]
     Dosage: 20 UG, QD
     Route: 058
  3. TERIPARATIDE [Suspect]
     Dosage: 20 UG, QD
     Route: 058
  4. TERIPARATIDE [Suspect]
     Dosage: 20 UG, QD
     Route: 058
  5. TERIPARATIDE [Suspect]
     Dosage: 20 UG, QD
     Route: 058
  6. SYNTHROID [Concomitant]
     Dosage: 100 MG, UNK
  7. HYDROCODONE [Concomitant]
     Indication: PAIN
     Dosage: UNK, BID
  8. LIPITOR [Concomitant]
     Dosage: UNK
  9. HYDROCHLOROTHIAZIDE [Concomitant]
     Dosage: UNK
  10. SIMVASTATIN [Concomitant]
     Indication: BLOOD CHOLESTEROL
     Dosage: UNK
  11. ASPIRIN [Concomitant]
     Dosage: 81 MG, QD
  12. WARFARIN [Concomitant]
     Dosage: UNK
  13. OMEPRAZOLE [Concomitant]
     Indication: DYSPEPSIA
     Dosage: UNK
  14. CALCIUM [Concomitant]
     Dosage: UNK
  15. POTASSIUM [Concomitant]
     Dosage: 99 MG, UNK
  16. ATENOLOL [Concomitant]
     Dosage: UNK
  17. VITAMIN D [Concomitant]
     Dosage: UNK
  18. VITAMIN K [Concomitant]
     Dosage: UNK
  19. CETIRIZINE [Concomitant]
     Indication: HYPERSENSITIVITY
     Dosage: 10 MG, EACH MORNING
  20. MIRALAX [Concomitant]
     Dosage: UNK, PRN
  21. ZYRTEC [Concomitant]
     Dosage: UNK
  22. LISINOPRIL [Concomitant]
     Indication: BLOOD PRESSURE
     Dosage: UNK
  23. PRAVASTATIN [Concomitant]
     Indication: BLOOD CHOLESTEROL
     Dosage: UNK
  24. NASONEX [Concomitant]
     Dosage: UNK
  25. AMIODARONE [Concomitant]
     Indication: ATRIAL FIBRILLATION
     Dosage: UNK, BID
  26. BENADRYL [Concomitant]
     Dosage: UNK, PRN
  27. PREMARIN [Concomitant]
     Indication: VULVOVAGINAL DRYNESS
     Dosage: UNK

REACTIONS (16)
  - Atrial fibrillation [Unknown]
  - Atrial fibrillation [Unknown]
  - Atrial fibrillation [Unknown]
  - Spinal fracture [Unknown]
  - Fall [Unknown]
  - Gait disturbance [Unknown]
  - Muscle disorder [Unknown]
  - Muscular weakness [Unknown]
  - Myalgia [Unknown]
  - Blood thyroid stimulating hormone increased [Unknown]
  - Malaise [Unknown]
  - Asthenia [Unknown]
  - Hiatus hernia [Unknown]
  - Kidney infection [Not Recovered/Not Resolved]
  - Nasopharyngitis [Recovering/Resolving]
  - Cough [Recovering/Resolving]
